FAERS Safety Report 8977399 (Version 1)
Quarter: 2012Q4

REPORT INFORMATION
  Report Type: 
  Country: US (occurrence: US)
  Receive Date: 20121220
  Receipt Date: 20121220
  Transmission Date: 20130627
  Serious: No
  Sender: FDA-Public Use
  Company Number: US-PFIZER INC-2012323449

PATIENT
  Age: 77 Year
  Sex: Female
  Weight: 63.49 kg

DRUGS (5)
  1. ZOLOFT [Suspect]
     Indication: DEMENTIA
     Dosage: UNK
  2. ATENOLOL [Concomitant]
     Indication: BLOOD PRESSURE HIGH
     Dosage: 50 mg, UNK
  3. NORVASC [Concomitant]
     Indication: CARDIAC DISORDER
     Dosage: 10 mg, daily
  4. LIPITOR [Concomitant]
     Indication: BLOOD CHOLESTEROL ABNORMAL
     Dosage: 40 mg, daily
  5. NEURONTIN [Concomitant]
     Indication: NEUROPATHY
     Dosage: 300 mg, 2x/day

REACTIONS (2)
  - Drug ineffective [Unknown]
  - Off label use [Unknown]
